FAERS Safety Report 6409631-0 (Version None)
Quarter: 2009Q4

REPORT INFORMATION
  Report Type: 
  Country: None (occurrence: None)
  Receive Date: 20091022
  Receipt Date: 20091014
  Transmission Date: 20100525
  Serious: Yes (Hospitalization)
  Sender: FDA-Public Use
  Company Number: FR-PFIZER INC-2009282763

PATIENT
  Age: 86 Year

DRUGS (6)
  1. AMLODIPINE BESYLATE [Suspect]
     Indication: HYPERTENSION
     Dosage: 5 MG, DAILY
     Route: 048
     Dates: end: 20090119
  2. HYZAAR [Suspect]
     Indication: HYPERTENSION
     Dosage: 1 DF,DAILY
     Route: 048
     Dates: end: 20090119
  3. TAMSULOSIN HCL [Concomitant]
     Dosage: UNK
  4. EUPRESSYL [Concomitant]
     Dosage: UNK
  5. PLAVIX [Concomitant]
     Dosage: UNK
  6. ZOCOR [Concomitant]
     Dosage: UNK

REACTIONS (1)
  - FALL [None]
